FAERS Safety Report 8257674-7 (Version None)
Quarter: 2012Q2

REPORT INFORMATION
  Report Type: 
  Country: None (occurrence: None)
  Receive Date: 20120403
  Receipt Date: 20120321
  Transmission Date: 20120825
  Serious: Yes (Hospitalization, Other)
  Sender: FDA-Public Use
  Company Number: US-ROCHE-778813

PATIENT
  Sex: Female
  Weight: 90.7 kg

DRUGS (6)
  1. ACTEMRA [Suspect]
     Route: 042
     Dates: start: 20110125, end: 20110125
  2. PREDNISONE TAB [Concomitant]
     Dosage: TAKEN FOR 08 YEARS
     Route: 048
  3. ACTEMRA [Suspect]
     Route: 042
     Dates: start: 20101215, end: 20101215
  4. ACTEMRA [Suspect]
     Indication: RHEUMATOID ARTHRITIS
     Dosage: FORM: INFUSION
     Route: 042
     Dates: start: 20101117, end: 20101117
  5. ACTEMRA [Suspect]
     Dosage: TAKEN AT A HIGHER DOSAGE
     Route: 042
  6. METHOTREXATE [Concomitant]
     Dosage: TAKEN FOR 08 YEARS
     Route: 048

REACTIONS (9)
  - UPPER RESPIRATORY TRACT INFECTION [None]
  - NASOPHARYNGITIS [None]
  - DYSPNOEA [None]
  - SINUSITIS [None]
  - ASTHMA [None]
  - NIGHT SWEATS [None]
  - PRURITUS [None]
  - HEART RATE ABNORMAL [None]
  - CHEST DISCOMFORT [None]
